FAERS Safety Report 7135061-2 (Version None)
Quarter: 2010Q4

REPORT INFORMATION
  Report Type: 
  Country: None (occurrence: None)
  Receive Date: 20101203
  Receipt Date: 20101201
  Transmission Date: 20110411
  Serious: Yes (Hospitalization, Other)
  Sender: FDA-Public Use
  Company Number: NL-ABBOTT-10P-114-0687826-00

PATIENT
  Sex: Male
  Weight: 55 kg

DRUGS (4)
  1. HUMIRA [Suspect]
     Indication: CROHN'S DISEASE
     Dosage: 160MG ON 11-SEP-2010, 80MG ON 25-SEP-2010, 40 MG EVERY 2 WEEKS FROM 12-OCT-2010 ONWARDS
     Route: 058
     Dates: start: 20100911, end: 20100911
  2. HUMIRA [Suspect]
     Dates: start: 20100925, end: 20100925
  3. HUMIRA [Suspect]
     Dates: start: 20101012
  4. PARACETAMOL [Concomitant]
     Indication: PAIN
     Dosage: AS NEEDED
     Route: 048

REACTIONS (4)
  - ABSCESS [None]
  - BLOOD TEST ABNORMAL [None]
  - PAIN [None]
  - SYNCOPE [None]
